FAERS Safety Report 9026224 (Version 1)
Quarter: 2013Q1

REPORT INFORMATION
  Report Type: Spontaneous
  Country: US (occurrence: None)
  Receive Date: 20130108
  Receipt Date: 20130108
  Transmission Date: 20140127
  Serious: Yes (Hospitalization)
  Sender: FDA-Public Use
  Company Number: 2012AP004408

PATIENT
  Age: 54 Year
  Sex: Male

DRUGS (5)
  1. CIPROFLOXACIN [Suspect]
     Indication: DIVERTICULITIS
     Route: 042
  2. EPINEPHRINE [Suspect]
     Indication: ANAPHYLACTIC REACTION
     Route: 030
  3. METRONIDAZOLE [Concomitant]
  4. DIPHENHYDRAMINE [Concomitant]
  5. DEXAMETHASONE [Concomitant]

REACTIONS (3)
  - Anaphylactic reaction [None]
  - Acute myocardial infarction [None]
  - Arteriospasm coronary [None]
